FAERS Safety Report 16352332 (Version 1)
Quarter: 2019Q2

REPORT INFORMATION
  Report Type: Report from Study
  Country: DE (occurrence: DE)
  Receive Date: 20190524
  Receipt Date: 20190524
  Transmission Date: 20190711
  Serious: Yes (Hospitalization)
  Sender: FDA-Public Use
  Company Number: DE-MYLANLABS-2019M1048930

PATIENT
  Age: 20 Year
  Sex: Male

DRUGS (3)
  1. AMINOSALICYLATE SODIUM [Concomitant]
     Active Substance: AMINOSALICYLATE SODIUM
     Dosage: DOSAGE FORM: UNSPECIFIED
     Route: 065
     Dates: start: 20100617
  2. SIMPONI [Suspect]
     Active Substance: GOLIMUMAB
     Indication: COLITIS ULCERATIVE
     Dosage: 50 MILLIGRAM
     Route: 058
     Dates: start: 20140325
  3. AZATHIOPRINE. [Suspect]
     Active Substance: AZATHIOPRINE
     Indication: PRODUCT USED FOR UNKNOWN INDICATION
     Dosage: DOSAGE FORM: UNSPECIFIED
     Route: 065

REACTIONS (6)
  - Blood iron decreased [Recovered/Resolved]
  - Cholangitis sclerosing [Not Recovered/Not Resolved]
  - Nasopharyngitis [Recovered/Resolved]
  - Liver function test increased [Unknown]
  - Rash [Recovered/Resolved]
  - Serum ferritin decreased [Recovered/Resolved]

NARRATIVE: CASE EVENT DATE: 20140404
